FAERS Safety Report 25961052 (Version 1)
Quarter: 2025Q4

REPORT INFORMATION
  Report Type: Spontaneous
  Country: RU (occurrence: RU)
  Receive Date: 20251027
  Receipt Date: 20251027
  Transmission Date: 20260118
  Serious: Yes (Other)
  Sender: ASTELLAS
  Company Number: RU-ASTELLAS-2025-AER-059118

PATIENT
  Age: 15 Year

DRUGS (2)
  1. CRESEMBA [Suspect]
     Active Substance: ISAVUCONAZONIUM SULFATE
     Indication: Mucormycosis
     Route: 065
  2. AMPHOTERICIN B [Suspect]
     Active Substance: AMPHOTERICIN B
     Indication: Mucormycosis
     Route: 065

REACTIONS (8)
  - Arrhythmia [Recovered/Resolved]
  - Conduction disorder [Recovered/Resolved]
  - Hypokalaemia [Recovered/Resolved]
  - Neurotoxicity [Recovered/Resolved]
  - Partial seizures [Recovered/Resolved]
  - Nausea [Recovered/Resolved]
  - Pyrexia [Recovered/Resolved]
  - Off label use [Unknown]
